FAERS Safety Report 19668727 (Version 2)
Quarter: 2021Q3

REPORT INFORMATION
  Report Type: Report from Study
  Country: CA (occurrence: CA)
  Receive Date: 20210806
  Receipt Date: 20210811
  Transmission Date: 20211014
  Serious: Yes (Other)
  Sender: FDA-Public Use
  Company Number: CA-JNJFOC-20210766434

PATIENT
  Age: 63 Year
  Sex: Male
  Weight: 80.2 kg

DRUGS (1)
  1. SIMPONI [Suspect]
     Active Substance: GOLIMUMAB
     Indication: COLITIS ULCERATIVE
     Route: 058
     Dates: start: 20190905

REACTIONS (3)
  - Haematoma [Unknown]
  - Inguinal hernia [Not Recovered/Not Resolved]
  - Postoperative wound infection [Unknown]
